FAERS Safety Report 8408836 (Version 4)
Quarter: 2014Q1

REPORT INFORMATION
  Report Type: Spontaneous
  Country: US (occurrence: US)
  Receive Date: 20120216
  Receipt Date: 20140204
  Transmission Date: 20141002
  Serious: Yes (Hospitalization)
  Sender: FDA-Public Use
  Company Number: US-B.I. PHARMACEUTICALS,INC./RIDGEFIELD-2012-BP-02903BP

PATIENT
  Age: 72 Year
  Sex: Female
  Weight: 118.39 kg

DRUGS (26)
  1. PRADAXA [Suspect]
     Indication: ATRIAL FIBRILLATION
     Dosage: 300 MG
     Route: 048
     Dates: start: 20110913, end: 20110920
  2. PRADAXA [Suspect]
     Dates: start: 201203
  3. COREG [Concomitant]
     Indication: CARDIAC FAILURE CONGESTIVE
     Dosage: 25 MG
     Route: 048
  4. COREG [Concomitant]
     Indication: ATRIAL FIBRILLATION
  5. LASIX [Concomitant]
     Indication: CARDIAC FAILURE CONGESTIVE
     Dosage: 80 MG
     Route: 048
  6. FISH OILS [Concomitant]
     Indication: ATRIAL FIBRILLATION
     Route: 048
     Dates: end: 201109
  7. FISH OILS [Concomitant]
     Indication: CORONARY ARTERY DISEASE
  8. ALLOPURINOL [Concomitant]
     Dosage: 100 MG
     Route: 048
  9. ALTACE [Concomitant]
     Indication: HYPERTENSION
     Dosage: 10 MG
     Route: 048
  10. ASPIRIN [Concomitant]
     Indication: ATRIAL FIBRILLATION
     Dosage: 81 MG
     Route: 048
     Dates: end: 201109
  11. ASPIRIN [Concomitant]
     Indication: CORONARY ARTERY DISEASE
  12. CHROMIUM [Concomitant]
     Dosage: 400 MG
     Dates: end: 201109
  13. VITAMIN D [Concomitant]
     Indication: OSTEOPOROSIS
  14. SYMBICORT [Concomitant]
  15. MILK THISTLE [Concomitant]
     Dosage: 175 MG
     Dates: end: 201109
  16. LIPITOR [Concomitant]
     Indication: BLOOD CHOLESTEROL INCREASED
  17. LIPITOR [Concomitant]
     Indication: HYPERLIPIDAEMIA
  18. NOVOLOG [Concomitant]
     Dates: end: 201109
  19. LANTUS [Concomitant]
     Dates: end: 201109
  20. POTASSIUM CHLORIDE [Concomitant]
     Dosage: 20 MEQ
     Dates: end: 201109
  21. CELEXA [Concomitant]
     Indication: ANXIETY
     Dosage: 10 MG
  22. CELEXA [Concomitant]
     Indication: DEPRESSION
  23. CALCITRIOL [Concomitant]
     Indication: OSTEOPOROSIS
     Dosage: 0.25 MCG
  24. ALBUTEROL [Concomitant]
     Indication: DYSPNOEA
  25. VENTOLIN HFA [Concomitant]
     Indication: DYSPNOEA
  26. VITAMIN D3 [Concomitant]

REACTIONS (3)
  - Gastrointestinal haemorrhage [Recovered/Resolved]
  - Gastrointestinal haemorrhage [Unknown]
  - Anaemia [Unknown]
